FAERS Safety Report 14740062 (Version 3)
Quarter: 2022Q2

REPORT INFORMATION
  Report Type: Spontaneous
  Country: US (occurrence: None)
  Receive Date: 20180410
  Receipt Date: 20220503
  Transmission Date: 20220721
  Serious: Yes (Other)
  Sender: FDA-Public Use
  Company Number: 2018SE42875

PATIENT
  Age: 22420 Day
  Sex: Female
  Weight: 59 kg

DRUGS (74)
  1. NEXIUM [Suspect]
     Active Substance: ESOMEPRAZOLE MAGNESIUM
     Indication: Gastrooesophageal reflux disease
     Route: 048
     Dates: start: 2010
  2. NEXIUM [Suspect]
     Active Substance: ESOMEPRAZOLE MAGNESIUM
     Indication: Gastritis
     Route: 048
     Dates: start: 2010
  3. NEXIUM [Suspect]
     Active Substance: ESOMEPRAZOLE MAGNESIUM
     Indication: Gastrooesophageal reflux disease
     Dosage: GENERIC
     Route: 048
     Dates: start: 2016, end: 2017
  4. NEXIUM [Suspect]
     Active Substance: ESOMEPRAZOLE MAGNESIUM
     Indication: Gastritis
     Dosage: GENERIC
     Route: 048
     Dates: start: 2016, end: 2017
  5. NEXIUM [Suspect]
     Active Substance: ESOMEPRAZOLE MAGNESIUM
     Indication: Gastrooesophageal reflux disease
     Route: 048
     Dates: start: 20111228
  6. NEXIUM [Suspect]
     Active Substance: ESOMEPRAZOLE MAGNESIUM
     Indication: Gastritis
     Route: 048
     Dates: start: 20111228
  7. PRILOSEC [Suspect]
     Active Substance: OMEPRAZOLE MAGNESIUM
     Indication: Gastrooesophageal reflux disease
     Route: 048
     Dates: start: 2011
  8. PRILOSEC [Suspect]
     Active Substance: OMEPRAZOLE MAGNESIUM
     Indication: Gastritis
     Route: 048
     Dates: start: 2011
  9. PRILOSEC [Suspect]
     Active Substance: OMEPRAZOLE MAGNESIUM
     Indication: Gastrooesophageal reflux disease
     Dosage: GENERIC
     Route: 048
     Dates: start: 20111029
  10. PRILOSEC [Suspect]
     Active Substance: OMEPRAZOLE MAGNESIUM
     Indication: Gastritis
     Dosage: GENERIC
     Route: 048
     Dates: start: 20111029
  11. PRILOSEC [Suspect]
     Active Substance: OMEPRAZOLE MAGNESIUM
     Indication: Gastrooesophageal reflux disease
     Route: 048
     Dates: start: 20160923
  12. PRILOSEC [Suspect]
     Active Substance: OMEPRAZOLE MAGNESIUM
     Indication: Gastritis
     Route: 048
     Dates: start: 20160923
  13. PREVACID 24 HR [Suspect]
     Active Substance: LANSOPRAZOLE
     Indication: Gastrooesophageal reflux disease
     Route: 065
  14. PREVACID 24 HR [Suspect]
     Active Substance: LANSOPRAZOLE
     Indication: Gastritis
     Route: 065
  15. AMITIZA [Concomitant]
     Active Substance: LUBIPROSTONE
     Indication: Constipation
     Dosage: 24.0MG UNKNOWN
     Dates: start: 2012, end: 2013
  16. AMOX-K CLAV [Concomitant]
     Indication: Bacterial infection
     Dosage: 875-125 MG
     Dates: start: 2012
  17. AMOX-K CLAV [Concomitant]
     Indication: Bacterial infection
     Dosage: 578.0MG UNKNOWN
     Dates: start: 2015
  18. AZELASTINE [Concomitant]
     Active Substance: AZELASTINE
     Dosage: 0.05%
     Route: 045
     Dates: start: 2012
  19. AMOXICILLIN [Concomitant]
     Active Substance: AMOXICILLIN
     Indication: Bacterial infection
     Dates: start: 2012, end: 2017
  20. AZITHROMYCIN [Concomitant]
     Active Substance: AZITHROMYCIN
     Indication: Bacterial infection
     Dosage: 250.0MG UNKNOWN
     Dates: start: 2014
  21. BISACODYL [Concomitant]
     Active Substance: BISACODYL
     Indication: Constipation
     Dosage: 5.0MG UNKNOWN
     Dates: start: 2011
  22. BUPROPION [Concomitant]
     Active Substance: BUPROPION
     Indication: Migraine
     Dosage: 100.0MG UNKNOWN
     Dates: start: 2012, end: 2014
  23. CARAFATE [Concomitant]
     Active Substance: SUCRALFATE
     Indication: Gastric ulcer
     Dosage: 1.0MG UNKNOWN
     Dates: start: 2013
  24. CEFADROXIL [Concomitant]
     Active Substance: CEFADROXIL
     Indication: Bacterial infection
     Dosage: 500.0MG UNKNOWN
     Dates: start: 2012, end: 2014
  25. CEFDINIR [Concomitant]
     Active Substance: CEFDINIR
     Indication: Bacterial infection
     Dosage: 300.0MG UNKNOWN
     Dates: start: 2012
  26. CEFUROXIME [Concomitant]
     Active Substance: CEFUROXIME
     Indication: Bacterial infection
     Dosage: 250.0MG UNKNOWN
     Dates: start: 2010, end: 2017
  27. CEFUROXIME [Concomitant]
     Active Substance: CEFUROXIME
     Indication: Bacterial infection
     Dosage: 500.0MG UNKNOWN
     Dates: start: 2010, end: 2017
  28. OFLOXACIN [Concomitant]
     Active Substance: OFLOXACIN
     Indication: Bacterial infection
     Dosage: 0.3%
     Dates: start: 2011
  29. CIPROFLOXACIN [Concomitant]
     Active Substance: CIPROFLOXACIN
     Indication: Bacterial infection
     Dosage: 500.0MG UNKNOWN
     Dates: start: 2011, end: 2015
  30. CLONAZEPAM [Concomitant]
     Active Substance: CLONAZEPAM
     Indication: Anxiety
     Dosage: 0.5MG UNKNOWN
     Dates: start: 2010
  31. DICYCLOMINE HYDROCHLORIDE [Concomitant]
     Active Substance: DICYCLOMINE HYDROCHLORIDE
     Indication: Irritable bowel syndrome
     Dosage: 10.0MG UNKNOWN
     Dates: start: 2015
  32. DOXYCYCLINE [Concomitant]
     Active Substance: DOXYCYCLINE
     Indication: Bacterial infection
     Dosage: 100.0MG UNKNOWN
     Dates: start: 2011, end: 2016
  33. ESCITALOPRAM [Concomitant]
     Active Substance: ESCITALOPRAM OXALATE
     Indication: Anxiety
     Dosage: 10.0MG UNKNOWN
     Dates: start: 2015
  34. ESTRADIOL [Concomitant]
     Active Substance: ESTRADIOL
     Indication: Oestrogen therapy
     Dosage: 1.0MG UNKNOWN
     Dates: start: 2015
  35. FLUTICASONE [Concomitant]
     Active Substance: FLUTICASONE
     Indication: Asthma
     Dosage: 50.0MG UNKNOWN
     Dates: start: 2011
  36. GABAPENTIN [Concomitant]
     Active Substance: GABAPENTIN
     Indication: Migraine
     Dosage: 300.0MG UNKNOWN
     Dates: start: 2015
  37. GENTAMICIN [Concomitant]
     Active Substance: GENTAMICIN
     Indication: Bacterial infection
     Dosage: 20.0MG UNKNOWN
     Dates: start: 2015
  38. HYDROCORTISONE [Concomitant]
     Active Substance: HYDROCORTISONE
     Indication: Skin disorder
     Dosage: 0.2%
     Dates: start: 2011
  39. HYDROXYZINE PAMOATE [Concomitant]
     Active Substance: HYDROXYZINE PAMOATE
     Dosage: 25.0MG UNKNOWN
     Dates: start: 2013, end: 2014
  40. LAMICTAL [Concomitant]
     Active Substance: LAMOTRIGINE
     Indication: Depression
     Dosage: 25.0MG UNKNOWN
     Dates: start: 2010
  41. LAMICTAL [Concomitant]
     Active Substance: LAMOTRIGINE
     Indication: Depression
     Dosage: 356 MG, 150 MG UNKNOWN
     Dates: start: 2010, end: 2016
  42. LEVOTHYROXINE [Concomitant]
     Active Substance: LEVOTHYROXINE
     Indication: Thyroid disorder
     Dates: start: 2012
  43. LINZESS [Concomitant]
     Active Substance: LINACLOTIDE
     Indication: Constipation
     Dates: start: 2013
  44. LITHIUM CARBONATE [Concomitant]
     Active Substance: LITHIUM CARBONATE
     Indication: Depression
     Dates: start: 2010, end: 2015
  45. LORATADINE [Concomitant]
     Active Substance: LORATADINE
     Indication: Multiple allergies
     Dates: start: 2011
  46. LYRICA [Concomitant]
     Active Substance: PREGABALIN
     Dates: start: 2016
  47. MOMETASONE [Concomitant]
     Active Substance: MOMETASONE
     Dates: start: 2016
  48. MONTELUKAST [Concomitant]
     Active Substance: MONTELUKAST SODIUM
     Indication: Asthma
     Dosage: 10.0MG UNKNOWN
     Dates: start: 2014, end: 2016
  49. MELOXICAM [Concomitant]
     Active Substance: MELOXICAM
     Indication: Pain
     Dates: start: 2013
  50. METHIMAZOLE [Concomitant]
     Active Substance: METHIMAZOLE
     Indication: Thyroid disorder
     Dates: start: 2012, end: 2013
  51. METHYLPREDNISOLONE [Concomitant]
     Active Substance: METHYLPREDNISOLONE
     Dates: start: 2010, end: 2016
  52. METRONIDAZOLE [Concomitant]
     Active Substance: METRONIDAZOLE
     Indication: Bacterial infection
     Dosage: 500.0MG UNKNOWN
     Dates: start: 2015
  53. MIDODRINE [Concomitant]
     Active Substance: MIDODRINE
     Indication: Blood pressure abnormal
     Dosage: 5.0MG UNKNOWN
     Dates: start: 2016
  54. MUPRICIN/TRIANMCIN [Concomitant]
     Indication: Hypersensitivity
     Dosage: 0.25%
     Dates: start: 2012
  55. NAPROXEN SOD [Concomitant]
     Indication: Pain
     Dosage: 550.0MG UNKNOWN
     Dates: start: 2013
  56. NARATRIPTAN [Concomitant]
     Active Substance: NARATRIPTAN HYDROCHLORIDE
     Indication: Migraine
     Dosage: 2.5MG UNKNOWN
     Dates: start: 2015
  57. NITROFURANTOIN [Concomitant]
     Active Substance: NITROFURANTOIN
     Indication: Urinary tract infection
     Dosage: 100.0MG UNKNOWN
     Dates: start: 2015
  58. ONDANSETRON [Concomitant]
     Active Substance: ONDANSETRON
     Indication: Nausea
     Dosage: 4.0MG UNKNOWN
     Dates: start: 2014
  59. POLYETHYLENE GLYCOLS [Concomitant]
     Active Substance: POLYETHYLENE GLYCOLS
     Indication: Constipation
     Dosage: 4.0MG UNKNOWN
     Dates: start: 2011, end: 2017
  60. PREDNISONE [Concomitant]
     Active Substance: PREDNISONE
     Indication: Multiple allergies
     Dosage: 20.0MG UNKNOWN
     Dates: start: 2011, end: 2017
  61. RANITIDINE [Concomitant]
     Active Substance: RANITIDINE
     Indication: Gastrooesophageal reflux disease
     Dosage: 150.0MG UNKNOWN
     Dates: start: 2010, end: 2017
  62. RELPAX [Concomitant]
     Active Substance: ELETRIPTAN HYDROBROMIDE
     Indication: Migraine
     Dosage: 150.0MG UNKNOWN
     Dates: start: 2013, end: 2014
  63. RIZATRIPTAN BENZOATE [Concomitant]
     Active Substance: RIZATRIPTAN BENZOATE
     Indication: Migraine
     Dosage: 10.0MG UNKNOWN
     Dates: start: 2013
  64. SUMATRIPTAN [Concomitant]
     Active Substance: SUMATRIPTAN
     Indication: Migraine
     Dosage: 100.0MG UNKNOWN
     Dates: start: 2010, end: 2016
  65. VITAMIN D [Concomitant]
     Active Substance: VITAMIN D NOS
     Indication: Supplementation therapy
     Dates: start: 2013, end: 2015
  66. ALBUTEROL [Concomitant]
     Active Substance: ALBUTEROL
  67. DEXILANT [Concomitant]
     Active Substance: DEXLANSOPRAZOLE
  68. FIORICET [Concomitant]
     Active Substance: ACETAMINOPHEN\BUTALBITAL\CAFFEINE
  69. FLEXERIL [Concomitant]
     Active Substance: CYCLOBENZAPRINE HYDROCHLORIDE
  70. ZYRTEC [Concomitant]
     Active Substance: CETIRIZINE HYDROCHLORIDE
  71. IMITREX [Concomitant]
     Active Substance: SUMATRIPTAN SUCCINATE
  72. TOPAMAX [Concomitant]
     Active Substance: TOPIRAMATE
  73. TOPIRAMATE [Concomitant]
     Active Substance: TOPIRAMATE
  74. MIDODRINE [Concomitant]
     Active Substance: MIDODRINE

REACTIONS (2)
  - Chronic kidney disease [Not Recovered/Not Resolved]
  - Renal failure [Unknown]

NARRATIVE: CASE EVENT DATE: 20220303
